FAERS Safety Report 7893707-5 (Version None)
Quarter: 2011Q4

REPORT INFORMATION
  Report Type: 
  Country: None (occurrence: None)
  Receive Date: 20111104
  Receipt Date: 20111028
  Transmission Date: 20120403
  Serious: Yes (Hospitalization, Other)
  Sender: FDA-Public Use
  Company Number: BR-BRISTOL-MYERS SQUIBB COMPANY-15709322

PATIENT
  Age: 52 Year
  Sex: Female
  Weight: 69 kg

DRUGS (3)
  1. SPRYCEL [Suspect]
     Indication: CHRONIC MYELOID LEUKAEMIA
     Dosage: DURATION:2 MONTHS
     Route: 048
     Dates: start: 20110422, end: 20110101
  2. METFORMIN HCL [Concomitant]
     Dosage: STARTED 4 YEARS AGO
  3. PROPRANOLOL [Concomitant]
     Dosage: STARTED 4 YEARS AGO

REACTIONS (12)
  - MENSTRUAL DISORDER [None]
  - DIZZINESS [None]
  - VOMITING [None]
  - LEUKOCYTOSIS [None]
  - BACK PAIN [None]
  - NEOPLASM MALIGNANT [None]
  - NAUSEA [None]
  - RASH PRURITIC [None]
  - ABDOMINAL PAIN UPPER [None]
  - PAIN [None]
  - HEADACHE [None]
  - LABYRINTHITIS [None]
